FAERS Safety Report 11321096 (Version 1)
Quarter: 2015Q3

REPORT INFORMATION
  Report Type: Spontaneous
  Country: US (occurrence: None)
  Receive Date: 20150626
  Receipt Date: 20150626
  Transmission Date: 20151125
  Serious: No
  Sender: FDA-Public Use
  Company Number: 1000076772

PATIENT
  Age: 66 Year
  Sex: Male

DRUGS (1)
  1. LINZESS [Suspect]
     Active Substance: LINACLOTIDE
     Indication: CONSTIPATION
     Dates: start: 201505

REACTIONS (2)
  - Abdominal pain upper [None]
  - Headache [None]

NARRATIVE: CASE EVENT DATE: 201505
